FAERS Safety Report 7054620-9 (Version None)
Quarter: 2010Q4

REPORT INFORMATION
  Report Type: 
  Country: None (occurrence: None)
  Receive Date: 20101015
  Receipt Date: 20100929
  Transmission Date: 20110411
  Serious: Yes (Other)
  Sender: FDA-Public Use
  Company Number: ACO_02442_2010

PATIENT
  Sex: Female
  Weight: 68.0396 kg

DRUGS (14)
  1. AMPYRA [Suspect]
     Indication: GAIT DISTURBANCE
     Dosage: (10 MG BID, EVERY 12 HOURS ORAL)
     Route: 048
     Dates: start: 20100923, end: 20100928
  2. SIMVASTATIN [Concomitant]
  3. SERTRALINE HYDROCHLORIDE [Concomitant]
  4. LEVOTHYROXINE [Concomitant]
  5. BACLOFEN [Concomitant]
  6. ALENDRONATE SODIUM [Concomitant]
  7. ZOLOFT [Concomitant]
  8. XANAX [Concomitant]
  9. VITAMIN B-COMPLEX, NICL COMBINATIONS [Concomitant]
  10. FISH OIL [Concomitant]
  11. CALCIUM [Concomitant]
  12. VITAMIN D [Concomitant]
  13. DRUGS FOR TREATMENT OF BONE DISEASES [Concomitant]
  14. VITAMIN B12 NOS [Concomitant]

REACTIONS (2)
  - CONVULSION [None]
  - UNRESPONSIVE TO STIMULI [None]
